FAERS Safety Report 16813336 (Version 3)
Quarter: 2020Q2

REPORT INFORMATION
  Report Type: Report from Study
  Country: None (occurrence: BR)
  Receive Date: 20190916
  Receipt Date: 20200615
  Transmission Date: 20200713
  Serious: Yes (Other)
  Sender: FDA-Public Use
  Company Number: BR-ABBVIE-19K-020-2921303-00

PATIENT
  Age: 46 Year
  Sex: Female
  Weight: 48 kg

DRUGS (2)
  1. PREDSIM [Concomitant]
     Active Substance: PREDNISOLONE
     Indication: RHEUMATOID ARTHRITIS
  2. HUMIRA [Suspect]
     Active Substance: ADALIMUMAB
     Indication: RHEUMATOID ARTHRITIS
     Route: 058
     Dates: start: 20190307, end: 201905

REACTIONS (17)
  - Post procedural complication [Recovered/Resolved]
  - Immunodeficiency [Recovered/Resolved]
  - Malaise [Recovered/Resolved]
  - Mucosal disorder [Unknown]
  - Candida infection [Recovered/Resolved]
  - Nausea [Recovered/Resolved]
  - Vaginal perforation [Recovered/Resolved]
  - Asthenia [Recovered/Resolved]
  - Antinuclear antibody positive [Unknown]
  - Uterine haemorrhage [Recovered/Resolved]
  - Anaemia [Recovered/Resolved]
  - Tremor [Recovered/Resolved]
  - Fear of injection [Unknown]
  - Hyperhidrosis [Recovered/Resolved]
  - Vaginal haemorrhage [Recovered/Resolved]
  - Coagulopathy [Unknown]
  - Rheumatoid arthritis [Not Recovered/Not Resolved]

NARRATIVE: CASE EVENT DATE: 2019
